FAERS Safety Report 4541203-5 (Version None)
Quarter: 2004Q4

REPORT INFORMATION
  Report Type: 
  Country: None (occurrence: None)
  Receive Date: 20041229
  Receipt Date: 20040119
  Transmission Date: 20050328
  Serious: Yes (Other)
  Sender: FDA-Public Use
  Company Number: IT-ABBOTT-04P-083-0247858-00

PATIENT
  Age: 29 Year
  Sex: Female

DRUGS (2)
  1. DEPAKENE [Suspect]
     Indication: EPILEPSY
     Route: 048
     Dates: start: 19920101
  2. INTERFERON BETA [Suspect]
     Indication: MULTIPLE SCLEROSIS
     Route: 058
     Dates: start: 20020101, end: 20031201

REACTIONS (2)
  - GRANULOCYTOPENIA [None]
  - NEUTROPENIA [None]
